FAERS Safety Report 24760218 (Version 1)
Quarter: 2024Q4

REPORT INFORMATION
  Report Type: Spontaneous
  Country: DE (occurrence: DE)
  Receive Date: 20241220
  Receipt Date: 20241220
  Transmission Date: 20250115
  Serious: Yes (Hospitalization, Other)
  Sender: B BRAUN
  Company Number: DE-B.Braun Medical Inc.-2167519

PATIENT
  Age: 40 Year
  Sex: Female
  Weight: 84 kg

DRUGS (24)
  1. ACETAMINOPHEN [Suspect]
     Active Substance: ACETAMINOPHEN
  2. PENICILLIN G [Suspect]
     Active Substance: PENICILLIN G
  3. NIFEDIPINE [Suspect]
     Active Substance: NIFEDIPINE
  4. AZITHROMYCIN [Suspect]
     Active Substance: AZITHROMYCIN
  5. XYLOCAINE [Suspect]
     Active Substance: LIDOCAINE HYDROCHLORIDE
  6. ARTICAINE HYDROCHLORIDE [Suspect]
     Active Substance: ARTICAINE HYDROCHLORIDE
  7. UNSPECIFIED INGREDIENT [Suspect]
     Active Substance: UNSPECIFIED INGREDIENT
  8. MORPHINE [Suspect]
     Active Substance: MORPHINE
  9. METOCLOPRAMIDE [Suspect]
     Active Substance: METOCLOPRAMIDE
  10. DOXYCYCLINE [Suspect]
     Active Substance: DOXYCYCLINE
  11. DUPIXENT [Suspect]
     Active Substance: DUPILUMAB
  12. COTRIM [Suspect]
     Active Substance: SULFAMETHOXAZOLE\TRIMETHOPRIM
  13. CODEINE [Suspect]
     Active Substance: CODEINE
  14. ENOXAPARIN SODIUM [Suspect]
     Active Substance: ENOXAPARIN SODIUM
  15. UNSPECIFIED INGREDIENT [Suspect]
     Active Substance: UNSPECIFIED INGREDIENT
  16. CLINDAMYCIN [Suspect]
     Active Substance: CLINDAMYCIN
  17. CIPROFLOXACIN [Suspect]
     Active Substance: CIPROFLOXACIN
  18. NOSCAPINE [Suspect]
     Active Substance: NOSCAPINE
  19. BISOPROLOL [Suspect]
     Active Substance: BISOPROLOL
  20. ARIXTRA [Suspect]
     Active Substance: FONDAPARINUX SODIUM
  21. APIXABAN [Suspect]
     Active Substance: APIXABAN
  22. AMBROXOL [Suspect]
     Active Substance: AMBROXOL
  23. ACETYLCYSTEINE [Suspect]
     Active Substance: ACETYLCYSTEINE
  24. ARTICAINE HYDROCHLORIDE\EPINEPHRINE HYDROCHLORIDE [Suspect]
     Active Substance: ARTICAINE HYDROCHLORIDE\EPINEPHRINE HYDROCHLORIDE

REACTIONS (24)
  - Lung disorder [Unknown]
  - Pneumonitis [Unknown]
  - Nausea [Unknown]
  - Dyspepsia [Unknown]
  - Condition aggravated [Unknown]
  - Eczema [Unknown]
  - Erythema [Unknown]
  - Hypertension [Unknown]
  - Tachycardia [Recovered/Resolved]
  - Dyspnoea [Recovered/Resolved]
  - Cough [Recovered/Resolved]
  - Flushing [Recovered/Resolved]
  - Obesity [Unknown]
  - Allergic sinusitis [Unknown]
  - Drug intolerance [Unknown]
  - Leukocytosis [Unknown]
  - Asthma [Unknown]
  - Osteoporosis [Unknown]
  - Pruritus [Unknown]
  - Nasal polyps [Unknown]
  - Hypersensitivity [Unknown]
  - Anaphylactic reaction [Unknown]
  - Sinobronchitis [Unknown]
  - Autoimmune thyroiditis [Unknown]
